FAERS Safety Report 5841786-9 (Version None)
Quarter: 2008Q3

REPORT INFORMATION
  Report Type: 
  Country: None (occurrence: None)
  Receive Date: 20080811
  Receipt Date: 20080811
  Transmission Date: 20090109
  Serious: No
  Sender: FDA-Public Use
  Company Number: None

PATIENT
  Age: 58 Year
  Sex: Male
  Weight: 72.5755 kg

DRUGS (2)
  1. LIPITOR [Suspect]
  2. PRAVASTATIN SODIUM [Suspect]

REACTIONS (5)
  - ARTHRITIS [None]
  - ARTHROPATHY [None]
  - CHONDROPATHY [None]
  - DRUG INEFFECTIVE [None]
  - MUSCULAR WEAKNESS [None]
